FAERS Safety Report 20082681 (Version 2)
Quarter: 2022Q2

REPORT INFORMATION
  Report Type: Spontaneous
  Country: None (occurrence: US)
  Receive Date: 20211117
  Receipt Date: 20220401
  Transmission Date: 20220720
  Serious: Yes (Other)
  Sender: FDA-Public Use
  Company Number: US-Imprimis NJOF-2121981

PATIENT
  Sex: Female

DRUGS (1)
  1. DEXTRAN 40\GLYCERIN [Suspect]
     Active Substance: DEXTRAN 40\GLYCERIN
     Indication: Dry eye
     Route: 047

REACTIONS (1)
  - Madarosis [Not Recovered/Not Resolved]
